FAERS Safety Report 6394563-7 (Version None)
Quarter: 2009Q4

REPORT INFORMATION
  Report Type: 
  Country: None (occurrence: None)
  Receive Date: 20091009
  Receipt Date: 20090928
  Transmission Date: 20100525
  Serious: Yes (Life-Threatening, Hospitalization, Other)
  Sender: FDA-Public Use
  Company Number: JP-JNJFOC-20090505924

PATIENT
  Sex: Female
  Weight: 64 kg

DRUGS (11)
  1. REMICADE [Suspect]
     Dosage: 24TH INFUSION
     Route: 042
     Dates: end: 20090509
  2. REMICADE [Suspect]
     Indication: RHEUMATOID ARTHRITIS
     Dosage: 23 INFUSIONS
     Route: 042
     Dates: end: 20090509
  3. TAKEPRON [Concomitant]
     Indication: GASTRITIS
     Route: 048
  4. SELBEX [Concomitant]
     Indication: GASTRITIS
     Route: 048
  5. METHYCOBAL [Concomitant]
     Indication: NEUROPATHY PERIPHERAL
     Route: 048
  6. RHEUMATREX [Concomitant]
     Indication: RHEUMATOID ARTHRITIS
     Route: 048
  7. NU-LOTAN [Concomitant]
     Indication: RHEUMATOID ARTHRITIS
     Route: 048
  8. HYPEN [Concomitant]
     Indication: ARTHRITIS
     Route: 048
  9. ALESION [Concomitant]
     Indication: HYPERSENSITIVITY
     Route: 048
  10. PREDONINE [Concomitant]
     Indication: RHEUMATOID ARTHRITIS
     Route: 048
  11. BETAHISTINE MESILATE [Concomitant]
     Indication: VERTIGO
     Route: 048

REACTIONS (6)
  - DIARRHOEA [None]
  - DISSEMINATED INTRAVASCULAR COAGULATION [None]
  - PROTEUS INFECTION [None]
  - PSOAS ABSCESS [None]
  - SEPSIS [None]
  - VOMITING [None]
